FAERS Safety Report 7463807-2 (Version None)
Quarter: 2011Q2

REPORT INFORMATION
  Report Type: 
  Country: None (occurrence: None)
  Receive Date: 20110506
  Receipt Date: 20110408
  Transmission Date: 20111010
  Serious: Yes (Other)
  Sender: FDA-Public Use
  Company Number: US-BAYER-200943908NA

PATIENT
  Age: 48 Year
  Sex: Female
  Weight: 97.506 kg

DRUGS (5)
  1. LEVOXYL [Concomitant]
     Dosage: 50 UNK, UNK
  2. NEXIUM [Concomitant]
     Dosage: 40 MG, UNK
  3. YASMIN [Suspect]
     Indication: PRODUCT USED FOR UNKNOWN INDICATION
     Dosage: UNK
     Dates: start: 20020101
  4. ALPRAZOLAM [Concomitant]
     Dosage: 0.5 MG, UNK
  5. YAZ [Suspect]
     Indication: PRODUCT USED FOR UNKNOWN INDICATION
     Dosage: UNK
     Dates: start: 20070101

REACTIONS (3)
  - ORGAN FAILURE [None]
  - GALLBLADDER DISORDER [None]
  - CHOLECYSTITIS CHRONIC [None]
